FAERS Safety Report 16843169 (Version 1)
Quarter: 2019Q3

REPORT INFORMATION
  Report Type: Spontaneous
  Country: US (occurrence: US)
  Receive Date: 20190802
  Receipt Date: 20190802
  Transmission Date: 20191005
  Serious: No
  Sender: FDA-Public Use
  Company Number: None

PATIENT
  Age: 40 Year
  Sex: Male

DRUGS (1)
  1. EPCLUSA [Suspect]
     Active Substance: SOFOSBUVIR\VELPATASVIR
     Indication: HEPATITIS C
     Dates: start: 201907

REACTIONS (4)
  - Heart rate increased [None]
  - Dehydration [None]
  - False positive investigation result [None]
  - Hyperhidrosis [None]

NARRATIVE: CASE EVENT DATE: 20190802
